FAERS Safety Report 4285962-8 (Version None)
Quarter: 2004Q1

REPORT INFORMATION
  Report Type: 
  Country: None (occurrence: None)
  Receive Date: 20040120
  Receipt Date: 20030129
  Transmission Date: 20041129
  Serious: Yes (Other)
  Sender: FDA-Public Use
  Company Number: NSADSS2003005482

PATIENT
  Age: 24 Year
  Sex: Female
  Weight: 70.3075 kg

DRUGS (3)
  1. COPPER T MODEL TCU 380A [Suspect]
     Indication: INTRA-UTERINE CONTRACEPTIVE DEVICE INSERTION
     Dosage: INTRAUTERINE
     Route: 015
     Dates: start: 20030102, end: 20030127
  2. PRENATAL (PRENATAL) [Concomitant]
  3. WELLBUTRIN (UNSPECIFIED) BUPROPION HYDROCHLORIDE [Concomitant]

REACTIONS (3)
  - ABORTION [None]
  - DRUG EXPOSURE DURING PREGNANCY [None]
  - VAGINAL HAEMORRHAGE [None]
